FAERS Safety Report 4471489-7 (Version None)
Quarter: 2004Q4

REPORT INFORMATION
  Report Type: 
  Country: None (occurrence: None)
  Receive Date: 20041006
  Receipt Date: 20040928
  Transmission Date: 20050328
  Serious: Yes (Hospitalization, Other)
  Sender: FDA-Public Use
  Company Number: 200414426BCC

PATIENT
  Age: 15 Year
  Sex: Female
  Weight: 52.1637 kg

DRUGS (1)
  1. E.S. BAYER BACK + BODY PAIN [Suspect]
     Dosage: 10500 MG, ONCE, ORAL
     Route: 048
     Dates: start: 20040912

REACTIONS (2)
  - BLOOD PRESSURE INCREASED [None]
  - INTENTIONAL OVERDOSE [None]
